FAERS Safety Report 16962233 (Version 1)
Quarter: 2019Q4

REPORT INFORMATION
  Report Type: Spontaneous
  Country: US (occurrence: US)
  Receive Date: 20191024
  Receipt Date: 20191024
  Transmission Date: 20200122
  Serious: No
  Sender: FDA-Public Use
  Company Number: None

PATIENT
  Age: 35 Year
  Sex: Female
  Weight: 51.3 kg

DRUGS (17)
  1. VITAMIN B COMPLEX [Concomitant]
     Active Substance: CYANOCOBALAMIN\DEXPANTHENOL\NIACINAMIDE\PYRIDOXINE HYDROCHLORIDE\RIBOFLAVIN 5^-PHOSPHATE SODIUM\THIAMINE HYDROCHLORIDE\VITAMIN B COMPLEX
  2. ZINC. [Concomitant]
     Active Substance: ZINC
  3. NP THYROID [Suspect]
     Active Substance: LEVOTHYROXINE\LIOTHYRONINE
     Indication: HYPOTHYROIDISM
     Dosage: ?          QUANTITY:2 TABLET(S);?
     Route: 048
  4. CROMOLYN SODIUM ORAL [Concomitant]
  5. PROBIOTICS [Concomitant]
     Active Substance: PROBIOTICS NOS
  6. TMG [Concomitant]
  7. ARMOUR THYROID [Concomitant]
     Active Substance: THYROID, PORCINE
  8. PEPCID AC [Concomitant]
     Active Substance: FAMOTIDINE
  9. ALPHA GPC [Concomitant]
  10. OMEPRAZOLE. [Concomitant]
     Active Substance: OMEPRAZOLE
  11. MAGNESIUM [Concomitant]
     Active Substance: MAGNESIUM
  12. VITAMIN D [Concomitant]
     Active Substance: VITAMIN D NOS
  13. KLONOPIN [Concomitant]
     Active Substance: CLONAZEPAM
  14. ZYRTEC [Concomitant]
     Active Substance: CETIRIZINE HYDROCHLORIDE
  15. THEONINE [Concomitant]
  16. NP THYROID [Suspect]
     Active Substance: LEVOTHYROXINE\LIOTHYRONINE
     Indication: HYPOTHYROIDISM
     Dosage: ?          QUANTITY:90 TABLET(S);?
     Route: 048
  17. MANGANESE [Concomitant]
     Active Substance: MANGANESE CHLORIDE

REACTIONS (5)
  - Hypothyroidism [None]
  - Product odour abnormal [None]
  - Tri-iodothyronine decreased [None]
  - Condition aggravated [None]
  - Product taste abnormal [None]

NARRATIVE: CASE EVENT DATE: 20190823
